FAERS Safety Report 17359364 (Version 1)
Quarter: 2020Q1

REPORT INFORMATION
  Report Type: Spontaneous
  Country: SG (occurrence: SG)
  Receive Date: 20200203
  Receipt Date: 20200203
  Transmission Date: 20200409
  Serious: Yes (Hospitalization)
  Sender: FDA-Public Use
  Company Number: SG-TEVA-2020-SG-1178825

PATIENT
  Age: 74 Year
  Sex: Male

DRUGS (4)
  1. EVEROLIMUS. [Interacting]
     Active Substance: EVEROLIMUS
     Indication: IMMUNOSUPPRESSANT DRUG THERAPY
     Route: 065
  2. ITRACONAZOLE. [Interacting]
     Active Substance: ITRACONAZOLE
     Indication: PHAEOHYPHOMYCOSIS
     Dosage: 400-900MG; FOR 10 MONTHS
     Route: 065
  3. AZATHIOPRINE. [Suspect]
     Active Substance: AZATHIOPRINE
     Indication: IMMUNOSUPPRESSANT DRUG THERAPY
     Route: 065
  4. PREDNISOLONE. [Suspect]
     Active Substance: PREDNISOLONE
     Indication: IMMUNOSUPPRESSANT DRUG THERAPY
     Route: 065

REACTIONS (4)
  - Phaeohyphomycosis [Recovered/Resolved]
  - Pulmonary mass [Unknown]
  - Drug interaction [Unknown]
  - Bronchiectasis [Unknown]
